FAERS Safety Report 7293740-0 (Version None)
Quarter: 2011Q1

REPORT INFORMATION
  Report Type: 
  Country: None (occurrence: None)
  Receive Date: 20110215
  Receipt Date: 20110204
  Transmission Date: 20110831
  Serious: Yes (Hospitalization)
  Sender: FDA-Public Use
  Company Number: SE-ELI_LILLY_AND_COMPANY-SE201102001183

PATIENT
  Age: 53 Year
  Sex: Male

DRUGS (2)
  1. ANDROCUR /SCH/ [Concomitant]
     Dosage: 50 MG, UNK
  2. ZYPREXA [Suspect]
     Dosage: 5 MG, UNKNOWN

REACTIONS (1)
  - PULMONARY EMBOLISM [None]
